FAERS Safety Report 7942618-5 (Version None)
Quarter: 2011Q4

REPORT INFORMATION
  Report Type: 
  Country: None (occurrence: None)
  Receive Date: 20111122
  Receipt Date: 20110808
  Transmission Date: 20120403
  Serious: Yes (Other)
  Sender: FDA-Public Use
  Company Number: PHHY2011US35482

PATIENT
  Age: 47 Year
  Sex: Female
  Weight: 116.1208 kg

DRUGS (5)
  1. SOLU-MEDROL [Concomitant]
  2. ROBAXIN (METHOCARBAMOL) 04/19/2011 TO UNK [Concomitant]
  3. NEURONTIN [Concomitant]
  4. NEXIUM [Concomitant]
  5. GILENYA [Suspect]
     Indication: MULTIPLE SCLEROSIS
     Dosage: 0.5 MG, QD, ORAL
     Route: 048
     Dates: start: 20101122, end: 20110719

REACTIONS (2)
  - WHITE BLOOD CELL COUNT DECREASED [None]
  - SEASONAL ALLERGY [None]
